FAERS Safety Report 8859482 (Version 1)
Quarter: 2012Q4

REPORT INFORMATION
  Report Type: 
  Country: FR (occurrence: FR)
  Receive Date: 20121024
  Receipt Date: 20121024
  Transmission Date: 20130627
  Serious: Yes (Other)
  Sender: FDA-Public Use
  Company Number: FR-ROCHE-1148232

PATIENT
  Sex: Female

DRUGS (6)
  1. MABTHERA [Suspect]
     Indication: LYMPHOMA
     Route: 065
  2. DOXORUBICIN [Concomitant]
  3. CYCLOPHOSPHAMIDE [Concomitant]
  4. VINDESINE [Concomitant]
  5. BLEOMYCIN [Concomitant]
  6. PREDNISONE [Concomitant]

REACTIONS (1)
  - Asthma [Unknown]
